FAERS Safety Report 12918849 (Version 2)
Quarter: 2017Q1

REPORT INFORMATION
  Report Type: Report from Study
  Country: VE (occurrence: VE)
  Receive Date: 20161108
  Receipt Date: 20170130
  Transmission Date: 20170428
  Serious: Yes (Hospitalization)
  Sender: FDA-Public Use
  Company Number: PHHY2016VE151059

PATIENT
  Sex: Female

DRUGS (1)
  1. TASIGNA [Suspect]
     Active Substance: NILOTINIB
     Indication: CHRONIC MYELOID LEUKAEMIA
     Dosage: 800 MG, QD
     Route: 048
     Dates: start: 20161021

REACTIONS (10)
  - Weight decreased [Unknown]
  - Vomiting [Unknown]
  - Organ failure [Unknown]
  - Diarrhoea [Recovered/Resolved]
  - Dehydration [Unknown]
  - Constipation [Unknown]
  - Viral infection [Unknown]
  - Hypersensitivity [Unknown]
  - Burning sensation [Unknown]
  - Pruritus generalised [Unknown]
